FAERS Safety Report 20547632 (Version 2)
Quarter: 2022Q1

REPORT INFORMATION
  Report Type: Spontaneous
  Country: US (occurrence: US)
  Receive Date: 20220303
  Receipt Date: 20220309
  Transmission Date: 20220423
  Serious: Yes (Hospitalization, Other)
  Sender: FDA-Public Use
  Company Number: US-TEVA-2022-US-2012030

PATIENT
  Age: 74 Year
  Sex: Female

DRUGS (3)
  1. NEFAZODONE [Suspect]
     Active Substance: NEFAZODONE
     Indication: Depression
     Dosage: AT BEDTIME
     Route: 065
     Dates: end: 202101
  2. TRAZODONE [Concomitant]
     Active Substance: TRAZODONE HYDROCHLORIDE
     Indication: Insomnia
     Route: 065
  3. VILAZODONE [Concomitant]
     Active Substance: VILAZODONE

REACTIONS (4)
  - Near death experience [Unknown]
  - Hospitalisation [Recovered/Resolved with Sequelae]
  - Illness [Not Recovered/Not Resolved]
  - Product availability issue [Unknown]
